FAERS Safety Report 25614116 (Version 1)
Quarter: 2025Q3

REPORT INFORMATION
  Report Type: Spontaneous
  Country: A1 (occurrence: A1)
  Receive Date: 20250728
  Receipt Date: 20250728
  Transmission Date: 20251021
  Serious: Yes (Life-Threatening, Hospitalization, Other)
  Sender: ARMSTRONG PHARMACEUTICALS, INC.
  Company Number: A1-Armstrong Pharmaceuticals, Inc.-2181384

PATIENT
  Sex: Male

DRUGS (1)
  1. PRIMATENE MIST [Suspect]
     Active Substance: EPINEPHRINE
     Indication: Asthma

REACTIONS (2)
  - Asthma [Unknown]
  - Asthmatic crisis [Unknown]

NARRATIVE: CASE EVENT DATE: 20220906
